FAERS Safety Report 24792274 (Version 1)
Quarter: 2024Q4

REPORT INFORMATION
  Report Type: Spontaneous
  Country: US (occurrence: US)
  Receive Date: 20241231
  Receipt Date: 20241231
  Transmission Date: 20250115
  Serious: Yes (Other)
  Sender: RANBAXY
  Company Number: US-SUN PHARMACEUTICAL INDUSTRIES LTD-2024R1-487239

PATIENT
  Age: 4 Decade
  Sex: Female

DRUGS (2)
  1. CLINDAMYCIN [Suspect]
     Active Substance: CLINDAMYCIN
     Indication: Toxic shock syndrome streptococcal
     Dosage: 800 MILLIGRAM, EVERY 8HOURS
     Route: 065
  2. PENICILLIN G [Suspect]
     Active Substance: PENICILLIN G
     Indication: Toxic shock syndrome streptococcal
     Dosage: 12MILLION UNITS EVERY 12 HOURS
     Route: 065

REACTIONS (1)
  - Disease recurrence [Unknown]
